FAERS Safety Report 18902466 (Version 1)
Quarter: 2021Q1

REPORT INFORMATION
  Report Type: Spontaneous
  Country: JP (occurrence: JP)
  Receive Date: 20210216
  Receipt Date: 20210216
  Transmission Date: 20210420
  Serious: Yes (Other)
  Sender: FDA-Public Use
  Company Number: JP-INSUD PHARMA-2102JP00161

PATIENT

DRUGS (6)
  1. SULBACTAM/AMPICILLIN [Suspect]
     Active Substance: AMPICILLIN SODIUM\SULBACTAM SODIUM
     Indication: BRAIN ABSCESS
  2. PENICILLIN NOS [Suspect]
     Active Substance: PENICILLIN
     Indication: BRAIN ABSCESS
  3. ACETAMINOPHEN. [Suspect]
     Active Substance: ACETAMINOPHEN
     Indication: BRAIN ABSCESS
     Dosage: UNKNOWN
     Route: 065
  4. PEMBROLIZUMAB. [Suspect]
     Active Substance: PEMBROLIZUMAB
     Indication: NON-SMALL CELL LUNG CANCER STAGE IV
  5. NUVESSA [Suspect]
     Active Substance: METRONIDAZOLE
     Indication: BRAIN ABSCESS
     Dosage: UNKNOWN
     Route: 065
  6. CEFTRIAXONE. [Suspect]
     Active Substance: CEFTRIAXONE
     Indication: BRAIN ABSCESS

REACTIONS (6)
  - Rash erythematous [Recovering/Resolving]
  - Toxic epidermal necrolysis [Recovering/Resolving]
  - Epidermal necrosis [Recovering/Resolving]
  - Skin erosion [Recovering/Resolving]
  - Erythema [Recovering/Resolving]
  - Pyrexia [Recovering/Resolving]
